FAERS Safety Report 4921571-2 (Version None)
Quarter: 2006Q1

REPORT INFORMATION
  Report Type: 
  Country: None (occurrence: None)
  Receive Date: 20060221
  Receipt Date: 20060207
  Transmission Date: 20060701
  Serious: Yes (Other)
  Sender: FDA-Public Use
  Company Number: 2006019000

PATIENT
  Age: 2 Month
  Sex: Male
  Weight: 6.3504 kg

DRUGS (1)
  1. INFANT'S PEDIACARE DECONGESTANT AND COUGH DROPS (PSEUDOEPHEDRINE, DEXT [Suspect]
     Dosage: LESS THAN 0.4 ML ONCE PER DAY 5-6 TIMES, ORAL
     Route: 048
     Dates: start: 20060101, end: 20060207

REACTIONS (1)
  - SOMNOLENCE [None]
